FAERS Safety Report 21018050 (Version 1)
Quarter: 2022Q2

REPORT INFORMATION
  Report Type: Spontaneous
  Country: US (occurrence: None)
  Receive Date: 20220627
  Receipt Date: 20220627
  Transmission Date: 20220720
  Serious: Yes (Hospitalization)
  Sender: FDA-Public Use
  Company Number: None

PATIENT
  Sex: Female

DRUGS (13)
  1. VIGABATRIN [Suspect]
     Active Substance: VIGABATRIN
     Indication: Partial seizures
     Dosage: DISSOLVE 2 PACKETS (1000 MG) IN 20 ML OF WATER AND GIVE 15 ML (750 MG) BY MOUTH TWICE DAILY
     Route: 048
     Dates: start: 20210713
  2. BACLOFEN [Concomitant]
     Active Substance: BACLOFEN
  3. DIAZEPAM [Concomitant]
     Active Substance: DIAZEPAM
  4. FAMOTIDINE [Concomitant]
     Active Substance: FAMOTIDINE
  5. FERROUS SULFATE [Concomitant]
     Active Substance: FERROUS SULFATE
  6. IBUPROFEN [Concomitant]
  7. LEVETIRACETAM [Concomitant]
     Active Substance: LEVETIRACETAM
  8. LIQUID PAIN RELIEF [Concomitant]
  9. OXCARBAZEPIN [Concomitant]
  10. VITAMINS [Concomitant]
     Active Substance: VITAMINS
  11. POLYETHYLENE GLYCOL [Concomitant]
  12. VIGABATRIN [Concomitant]
  13. VITAMIN D3 [Concomitant]
     Active Substance: CHOLECALCIFEROL

REACTIONS (2)
  - Feeding intolerance [None]
  - Cardiac arrest [None]
